FAERS Safety Report 12776902 (Version 3)
Quarter: 2017Q2

REPORT INFORMATION
  Report Type: Spontaneous
  Country: JP (occurrence: JP)
  Receive Date: 20160923
  Receipt Date: 20170501
  Transmission Date: 20170830
  Serious: Yes (Other)
  Sender: FDA-Public Use
  Company Number: JP-009507513-1609JPN011346

PATIENT
  Age: 48 Year
  Sex: Male

DRUGS (14)
  1. ARIPIPRAZOLE. [Concomitant]
     Active Substance: ARIPIPRAZOLE
     Dosage: UNK
     Route: 048
     Dates: end: 20141218
  2. REFLEX [Suspect]
     Active Substance: MIRTAZAPINE
     Dosage: 30 MG, QD
     Route: 048
     Dates: start: 20131213, end: 20150108
  3. TRIHEXYPHENIDYL HYDROCHLORIDE. [Concomitant]
     Active Substance: TRIHEXYPHENIDYL HYDROCHLORIDE
     Indication: DYSARTHRIA
     Dosage: UNK
     Route: 048
     Dates: end: 20150123
  4. REFLEX [Suspect]
     Active Substance: MIRTAZAPINE
     Dosage: 7.5 MG, QD
     Route: 048
     Dates: start: 20150515, end: 20150611
  5. REFLEX [Suspect]
     Active Substance: MIRTAZAPINE
     Indication: DEPRESSION
     Dosage: 15 MG, QD
     Route: 048
     Dates: start: 20130222, end: 20130530
  6. REFLEX [Suspect]
     Active Substance: MIRTAZAPINE
     Dosage: 30 MG, QD
     Route: 048
     Dates: start: 20150220, end: 20150305
  7. REFLEX [Suspect]
     Active Substance: MIRTAZAPINE
     Dosage: 15 MG, QD
     Route: 048
     Dates: start: 20150320, end: 20150514
  8. REFLEX [Suspect]
     Active Substance: MIRTAZAPINE
     Dosage: 37.5 MG, QD
     Route: 048
     Dates: start: 20150109, end: 20150219
  9. REFLEX [Suspect]
     Active Substance: MIRTAZAPINE
     Dosage: 22.5 MG, QD
     Route: 048
     Dates: start: 20150306, end: 20150319
  10. REFLEX [Suspect]
     Active Substance: MIRTAZAPINE
     Indication: ABULIA
     Dosage: 22.5 MG, QD
     Route: 048
     Dates: start: 20130531, end: 20131212
  11. ARIPIPRAZOLE. [Concomitant]
     Active Substance: ARIPIPRAZOLE
     Dosage: 3 MG, QD
     Route: 048
     Dates: start: 201308, end: 201311
  12. ARIPIPRAZOLE. [Concomitant]
     Active Substance: ARIPIPRAZOLE
     Dosage: 6 MG, QD
     Route: 048
     Dates: start: 201312
  13. TRIHEXYPHENIDYL HYDROCHLORIDE. [Concomitant]
     Active Substance: TRIHEXYPHENIDYL HYDROCHLORIDE
     Indication: DYSKINESIA
     Dosage: 4 MG, UNK
     Route: 048
     Dates: start: 201411
  14. ARIPIPRAZOLE. [Concomitant]
     Active Substance: ARIPIPRAZOLE
     Indication: PRODUCT USED FOR UNKNOWN INDICATION
     Dosage: 1.5 MG, QD
     Route: 048
     Dates: start: 201307, end: 201308

REACTIONS (2)
  - Dyslalia [Not Recovered/Not Resolved]
  - Dyskinesia [Not Recovered/Not Resolved]

NARRATIVE: CASE EVENT DATE: 201410
